FAERS Safety Report 14861231 (Version 1)
Quarter: 2018Q2

REPORT INFORMATION
  Report Type: Spontaneous
  Country: IL (occurrence: IL)
  Receive Date: 20180508
  Receipt Date: 20180508
  Transmission Date: 20180711
  Serious: Yes (Death, Hospitalization)
  Sender: FDA-Public Use
  Company Number: IL-JNJFOC-20180505576

PATIENT
  Age: 77 Year
  Sex: Female

DRUGS (8)
  1. GLUCOPHAGE [Concomitant]
     Active Substance: METFORMIN HYDROCHLORIDE
     Route: 065
  2. NORVASC [Concomitant]
     Active Substance: AMLODIPINE BESYLATE
     Route: 065
  3. AMARYL [Concomitant]
     Active Substance: GLIMEPIRIDE
     Route: 065
  4. CARDILOC [Concomitant]
     Active Substance: BISOPROLOL FUMARATE
     Route: 065
  5. VENTAVIS [Suspect]
     Active Substance: ILOPROST
     Indication: PULMONARY HYPERTENSION
     Route: 055
     Dates: start: 20161129
  6. FUSID [Concomitant]
     Active Substance: FUROSEMIDE
     Route: 065
  7. XARELTO [Suspect]
     Active Substance: RIVAROXABAN
     Indication: PRODUCT USED FOR UNKNOWN INDICATION
     Route: 048
  8. AMIODARONE HYDROCHLORIDE. [Concomitant]
     Active Substance: AMIODARONE HYDROCHLORIDE
     Route: 065

REACTIONS (6)
  - Inappropriate schedule of drug administration [Not Recovered/Not Resolved]
  - Acute kidney injury [Fatal]
  - Head injury [Not Recovered/Not Resolved]
  - Inappropriate schedule of drug administration [Not Recovered/Not Resolved]
  - Brain stem haemorrhage [Fatal]
  - Fall [Not Recovered/Not Resolved]

NARRATIVE: CASE EVENT DATE: 20161129
